FAERS Safety Report 15218384 (Version 1)
Quarter: 2018Q3

REPORT INFORMATION
  Report Type: Spontaneous
  Country: US (occurrence: US)
  Receive Date: 20180704
  Receipt Date: 20180704
  Transmission Date: 20181010
  Serious: No
  Sender: FDA-Public Use
  Company Number: None

PATIENT
  Age: 28 Year
  Sex: Female
  Weight: 53.1 kg

DRUGS (8)
  1. GABAPENTIN 300MG CAPSULE [Suspect]
     Active Substance: GABAPENTIN
     Indication: NEURALGIA
     Route: 048
     Dates: start: 20180630
  2. NAPROSYN [Concomitant]
     Active Substance: NAPROXEN
  3. ZANAFLEX [Concomitant]
     Active Substance: TIZANIDINE HYDROCHLORIDE
  4. ETOLDOLAC [Concomitant]
  5. SPIRULINA [Concomitant]
     Active Substance: SPIRULINA
  6. TRAZODONE [Concomitant]
     Active Substance: TRAZODONE HYDROCHLORIDE
  7. MACA POWDER [Concomitant]
  8. VITAMIN D [Concomitant]
     Active Substance: CHOLECALCIFEROL

REACTIONS (2)
  - Libido decreased [None]
  - Depressed mood [None]

NARRATIVE: CASE EVENT DATE: 20180702
